FAERS Safety Report 8240176-1 (Version None)
Quarter: 2012Q1

REPORT INFORMATION
  Report Type: 
  Country: None (occurrence: None)
  Receive Date: 20120328
  Receipt Date: 20110621
  Transmission Date: 20120608
  Serious: No
  Sender: FDA-Public Use
  Company Number: US-PFIZER INC-K201100741

PATIENT
  Sex: Female
  Weight: 56.689 kg

DRUGS (2)
  1. SKELAXIN [Suspect]
     Indication: BACK PAIN
     Dosage: 800 MG, SINGLE
     Route: 048
     Dates: start: 20110601, end: 20110601
  2. ASPIRIN [Concomitant]
     Indication: BACK PAIN
     Dosage: UNK
     Route: 048
     Dates: start: 20110531, end: 20110531

REACTIONS (8)
  - PALPITATIONS [None]
  - HEADACHE [None]
  - DRUG EFFECT DECREASED [None]
  - CHEST DISCOMFORT [None]
  - PANIC REACTION [None]
  - DRY MOUTH [None]
  - DYSPNOEA [None]
  - MALAISE [None]
